FAERS Safety Report 9170307 (Version 1)
Quarter: 2013Q1

REPORT INFORMATION
  Report Type: Spontaneous
  Country: US (occurrence: US)
  Receive Date: 20130319
  Receipt Date: 20130319
  Transmission Date: 20140127
  Serious: Yes (Other)
  Sender: FDA-Public Use
  Company Number: US-ELI_LILLY_AND_COMPANY-US201303003074

PATIENT
  Sex: Female

DRUGS (2)
  1. PROZAC [Suspect]
     Dosage: UNK, UNKNOWN
     Route: 064
     Dates: end: 199710
  2. PAXIL [Concomitant]
     Dosage: UNK
     Route: 064
     Dates: start: 199710

REACTIONS (3)
  - Respiratory disorder neonatal [Unknown]
  - Infantile asthma [Unknown]
  - Foetal exposure during pregnancy [Recovered/Resolved]
